FAERS Safety Report 26000343 (Version 1)
Quarter: 2025Q4

REPORT INFORMATION
  Report Type: Report from Study
  Country: US (occurrence: US)
  Receive Date: 20251105
  Receipt Date: 20251105
  Transmission Date: 20260119
  Serious: Yes (Hospitalization)
  Sender: ABBVIE
  Company Number: US-ABBVIE-6526906

PATIENT
  Age: 34 Year
  Sex: Male

DRUGS (1)
  1. SKYRIZI [Suspect]
     Active Substance: RISANKIZUMAB-RZAA
     Indication: Psoriasis
     Route: 058
     Dates: start: 20231016, end: 20250607

REACTIONS (5)
  - COVID-19 [Recovered/Resolved]
  - Immunodeficiency [Unknown]
  - Tremor [Not Recovered/Not Resolved]
  - Muscular weakness [Unknown]
  - Neck pain [Unknown]

NARRATIVE: CASE EVENT DATE: 20250701
